FAERS Safety Report 24304791 (Version 1)
Quarter: 2024Q3

REPORT INFORMATION
  Report Type: Report from Study
  Country: AU (occurrence: AU)
  Receive Date: 20240910
  Receipt Date: 20240910
  Transmission Date: 20241016
  Serious: Yes (Hospitalization)
  Sender: ABBVIE
  Company Number: AU-ABBVIE-5909451

PATIENT
  Sex: Female

DRUGS (2)
  1. RINVOQ [Suspect]
     Active Substance: UPADACITINIB
     Indication: Dermatitis atopic
     Route: 048
     Dates: start: 2024
  2. RINVOQ [Suspect]
     Active Substance: UPADACITINIB
     Indication: Dermatitis atopic
     Dosage: DISCONTINUED IN 2024
     Route: 048
     Dates: start: 202407

REACTIONS (5)
  - Dermatitis [Recovering/Resolving]
  - Limb injury [Unknown]
  - Skin fissures [Unknown]
  - Blood cholesterol increased [Unknown]
  - Contusion [Unknown]

NARRATIVE: CASE EVENT DATE: 20240101
